FAERS Safety Report 12495828 (Version 4)
Quarter: 2018Q2

REPORT INFORMATION
  Report Type: Report from Study
  Country: IN (occurrence: IN)
  Receive Date: 20160624
  Receipt Date: 20180619
  Transmission Date: 20180711
  Serious: Yes (Other)
  Sender: FDA-Public Use
  Company Number: PHHY2016IN084587

PATIENT
  Sex: Female

DRUGS (3)
  1. GLIVEC [Suspect]
     Active Substance: IMATINIB MESYLATE
     Indication: GASTROINTESTINAL STROMAL TUMOUR
     Dosage: 400 MG, UNK
     Route: 065
  2. GLIVEC [Suspect]
     Active Substance: IMATINIB MESYLATE
     Dosage: 600 MG, UNK
     Route: 065
  3. GLIVEC [Suspect]
     Active Substance: IMATINIB MESYLATE
     Dosage: 800 MG, UNK
     Route: 065

REACTIONS (9)
  - Recurrent cancer [Unknown]
  - Vaginal discharge [Unknown]
  - Vertigo [Unknown]
  - Dizziness [Unknown]
  - Asthenia [Unknown]
  - Basal cell carcinoma [Unknown]
  - Squamous cell carcinoma of the vulva [Unknown]
  - Second primary malignancy [Unknown]
  - Vulvovaginal erythema [Unknown]

NARRATIVE: CASE EVENT DATE: 2011
